FAERS Safety Report 21041250 (Version 3)
Quarter: 2023Q1

REPORT INFORMATION
  Report Type: Report from Study
  Country: US (occurrence: US)
  Receive Date: 20220705
  Receipt Date: 20230307
  Transmission Date: 20230417
  Serious: Yes (Hospitalization, Other)
  Sender: FDA-Public Use
  Company Number: US-ABBVIE-22K-163-4413758-00

PATIENT
  Sex: Male

DRUGS (3)
  1. IMBRUVICA [Suspect]
     Active Substance: IBRUTINIB
     Indication: Chronic lymphocytic leukaemia
     Route: 048
     Dates: start: 202005, end: 202010
  2. IMBRUVICA [Suspect]
     Active Substance: IBRUTINIB
     Indication: Chronic lymphocytic leukaemia
     Route: 048
     Dates: start: 20201016
  3. GABAPENTIN [Concomitant]
     Active Substance: GABAPENTIN
     Indication: Product used for unknown indication
     Dosage: DOSE REDUCED TO 600 MILLIGRAM IN MORNING AND 300 MILLIGRAM IN EVENING

REACTIONS (4)
  - Ureteric cancer [Unknown]
  - Somnolence [Unknown]
  - Neuropathy peripheral [Recovering/Resolving]
  - Bladder cancer [Unknown]
